FAERS Safety Report 24062447 (Version 2)
Quarter: 2024Q3

REPORT INFORMATION
  Report Type: Report from Study
  Country: CA (occurrence: CA)
  Receive Date: 20240708
  Receipt Date: 20240710
  Transmission Date: 20241017
  Serious: Yes (Other)
  Sender: SANDOZ
  Company Number: CA-SANDOZ-SDZ2024CA021927

PATIENT
  Age: 36 Year
  Sex: Female

DRUGS (2)
  1. HYRIMOZ [Suspect]
     Active Substance: ADALIMUMAB-ADAZ
     Indication: Crohn^s disease
     Dosage: 40 MG, QW, PRE-FILLED SYRINGE
     Route: 058
     Dates: start: 20231018
  2. PREDNISONE [Concomitant]
     Active Substance: PREDNISONE
     Indication: Product used for unknown indication
     Dosage: UNK
     Route: 065

REACTIONS (9)
  - Uveitis [Unknown]
  - Glaucoma [Unknown]
  - Faecal calprotectin increased [Unknown]
  - Fistula [Unknown]
  - Malaise [Unknown]
  - C-reactive protein increased [Unknown]
  - Blood creatine increased [Unknown]
  - Drug ineffective [Unknown]
  - Off label use [Unknown]

NARRATIVE: CASE EVENT DATE: 20240226
